FAERS Safety Report 21388663 (Version 1)
Quarter: 2022Q3

REPORT INFORMATION
  Report Type: Spontaneous
  Country: DE (occurrence: DE)
  Receive Date: 20220928
  Receipt Date: 20220928
  Transmission Date: 20221027
  Serious: Yes (Hospitalization, Other)
  Sender: FDA-Public Use
  Company Number: DE-ADRED-08189-01

PATIENT
  Age: 35 Year
  Sex: Female

DRUGS (6)
  1. BEVACIZUMAB [Suspect]
     Active Substance: BEVACIZUMAB
     Indication: Product used for unknown indication
     Dosage: ACCORDING TO SCHEMA
     Route: 065
  2. DEXAMETHASONE [Concomitant]
     Active Substance: DEXAMETHASONE
     Dosage: ACCORDING TO SCHEMA
  3. GRANISETRON [Concomitant]
     Active Substance: GRANISETRON
     Dosage: ACCORDING TO SCHEMA
  4. IRINOTECAN [Concomitant]
     Active Substance: IRINOTECAN
     Dosage: ACCORDING TO SCHEMA
  5. FLUOROURACIL [Concomitant]
     Active Substance: FLUOROURACIL
     Dosage: ACCORDING TO SCHEMA
  6. LEUCOVORIN CALCIUM [Concomitant]
     Active Substance: LEUCOVORIN CALCIUM
     Dosage: ACCORDING TO SCHEMA

REACTIONS (5)
  - Abdominal pain upper [Unknown]
  - Abdominal pain upper [Unknown]
  - Ileus [Unknown]
  - Vomiting [Unknown]
  - Constipation [Unknown]
